FAERS Safety Report 9649116 (Version 4)
Quarter: 2019Q4

REPORT INFORMATION
  Report Type: Spontaneous
  Country: US (occurrence: US)
  Receive Date: 20131028
  Receipt Date: 20191227
  Transmission Date: 20200122
  Serious: Yes (Disabling)
  Sender: FDA-Public Use
  Company Number: US-SA-2013SA097156

PATIENT
  Age: 71 Year
  Sex: Male

DRUGS (5)
  1. LUMIZYME [Suspect]
     Active Substance: ALGLUCOSIDASE ALFA
     Dosage: 2100 MG, QOW
     Route: 042
     Dates: start: 2019
  2. LUMIZYME [Suspect]
     Active Substance: ALGLUCOSIDASE ALFA
     Dosage: 2100 MG, QOW
     Route: 042
     Dates: start: 20190828
  3. ZYRTEC [Concomitant]
     Active Substance: CETIRIZINE HYDROCHLORIDE
     Indication: PREMEDICATION
     Dosage: UNK
  4. LUMIZYME [Suspect]
     Active Substance: ALGLUCOSIDASE ALFA
     Indication: GLYCOGEN STORAGE DISEASE TYPE II
     Dosage: UNK UNK,QOW
     Route: 042
  5. DIPHENHYDRAMINE. [Concomitant]
     Active Substance: DIPHENHYDRAMINE
     Indication: PREMEDICATION
     Dosage: UNK

REACTIONS (5)
  - Product dose omission [Unknown]
  - Blood immunoglobulin G increased [Not Recovered/Not Resolved]
  - Rash [Not Recovered/Not Resolved]
  - Wheelchair user [Not Recovered/Not Resolved]
  - Asthenia [Not Recovered/Not Resolved]
